FAERS Safety Report 6179446-X (Version None)
Quarter: 2009Q2

REPORT INFORMATION
  Report Type: 
  Country: None (occurrence: None)
  Receive Date: 20090501
  Receipt Date: 20090501
  Transmission Date: 20091009
  Serious: Yes (Life-Threatening, Hospitalization)
  Sender: FDA-Public Use
  Company Number: None

PATIENT
  Age: 39 Year
  Sex: Male
  Weight: 68.4932 kg

DRUGS (2)
  1. ACTIFED [Suspect]
     Indication: LACRIMATION INCREASED
     Dosage: 1 PILL EVERY TWELVE HOURS PO
     Route: 048
     Dates: start: 20090411, end: 20090415
  2. ACTIFED [Suspect]
     Indication: RHINORRHOEA
     Dosage: 1 PILL EVERY TWELVE HOURS PO
     Route: 048
     Dates: start: 20090411, end: 20090415

REACTIONS (2)
  - DRUG LABEL CONFUSION [None]
  - GRAND MAL CONVULSION [None]
